FAERS Safety Report 20709728 (Version 6)
Quarter: 2022Q4

REPORT INFORMATION
  Report Type: Report from Study
  Country: US (occurrence: US)
  Receive Date: 20220414
  Receipt Date: 20221003
  Transmission Date: 20230113
  Serious: No
  Sender: FDA-Public Use
  Company Number: US-NOVARTISTESTPH-NVSC2022US085010

PATIENT
  Sex: Female

DRUGS (1)
  1. COSENTYX [Suspect]
     Active Substance: SECUKINUMAB
     Indication: Psoriasis
     Dosage: 300 MG
     Route: 058

REACTIONS (10)
  - Dizziness [Recovered/Resolved]
  - Pallor [Recovered/Resolved]
  - Flushing [Recovered/Resolved]
  - Vomiting [Recovered/Resolved]
  - Sneezing [Recovered/Resolved]
  - Headache [Recovered/Resolved]
  - Pain of skin [Recovered/Resolved]
  - Onychalgia [Recovered/Resolved]
  - Injection site haemorrhage [Recovered/Resolved]
  - Psoriasis [Unknown]
